FAERS Safety Report 9255185 (Version 1)
Quarter: 2013Q2

REPORT INFORMATION
  Report Type: Spontaneous
  Country: US (occurrence: US)
  Receive Date: 20130425
  Receipt Date: 20130425
  Transmission Date: 20140414
  Serious: No
  Sender: FDA-Public Use
  Company Number: US-MYLANLABS-2013S1000635

PATIENT
  Age: 68 Year
  Sex: Male
  Weight: 94.35 kg

DRUGS (4)
  1. CLONIDINE TRANSDERMAL SYSTEM USP [Suspect]
     Indication: BLOOD PRESSURE INCREASED
     Dosage: QW
     Route: 062
     Dates: start: 20121231, end: 20130103
  2. METOPROLOL [Concomitant]
     Indication: BLOOD PRESSURE INCREASED
     Route: 048
  3. ENALAPRIL [Concomitant]
     Indication: BLOOD PRESSURE INCREASED
     Route: 048
  4. HCTZ [Concomitant]
     Indication: BLOOD PRESSURE INCREASED
     Route: 048

REACTIONS (3)
  - Dysgeusia [Recovered/Resolved]
  - Dizziness [Recovered/Resolved]
  - Nausea [Recovered/Resolved]
